FAERS Safety Report 9169648 (Version 6)
Quarter: 2013Q3

REPORT INFORMATION
  Report Type: Spontaneous
  Country: US (occurrence: US)
  Receive Date: 20130318
  Receipt Date: 20130930
  Transmission Date: 20140515
  Serious: Yes (Hospitalization, Other)
  Sender: FDA-Public Use
  Company Number: US-009507513-1303USA007579

PATIENT
  Sex: Female
  Weight: 90.7 kg

DRUGS (1)
  1. NUVARING [Suspect]
     Indication: CONTRACEPTION
     Dosage: UNK
     Route: 067
     Dates: end: 201103

REACTIONS (14)
  - Dyspnoea exertional [Unknown]
  - Pulmonary embolism [Recovering/Resolving]
  - Off label use [Unknown]
  - Vertigo [Unknown]
  - Depression [Unknown]
  - Palpitations [Unknown]
  - Anticoagulation drug level below therapeutic [Unknown]
  - Hyperlipidaemia [Unknown]
  - Insomnia [Unknown]
  - Papilloma viral infection [Unknown]
  - Hypertension [Unknown]
  - Endometrial ablation [Unknown]
  - Bronchitis [Unknown]
  - Deep vein thrombosis [Unknown]
